FAERS Safety Report 8986490 (Version 1)
Quarter: 2012Q4

REPORT INFORMATION
  Report Type: 
  Country: FR (occurrence: FR)
  Receive Date: 20121226
  Receipt Date: 20121226
  Transmission Date: 20130627
  Serious: Yes (Hospitalization)
  Sender: FDA-Public Use
  Company Number: PHHY2012FR118342

PATIENT
  Age: 38 Year
  Sex: Male

DRUGS (3)
  1. TRILEPTAL [Suspect]
     Indication: EPILEPSY
     Dosage: 300 mg, BID
     Route: 048
     Dates: start: 20120825
  2. TEMODAL [Suspect]
     Indication: ASTROCYTOMA
     Dosage: UNK (Every 3 weeks)
     Dates: start: 201205
  3. ZOPHREN [Suspect]
     Indication: NAUSEA
     Dosage: UNK UKN, UNK
     Dates: start: 20121123, end: 20121123

REACTIONS (5)
  - Colitis ischaemic [Not Recovered/Not Resolved]
  - Abdominal pain [Unknown]
  - Diarrhoea [Unknown]
  - Intestinal ulcer [Unknown]
  - Gastrointestinal haemorrhage [Unknown]
